FAERS Safety Report 17326869 (Version 1)
Quarter: 2020Q1

REPORT INFORMATION
  Report Type: Spontaneous
  Country: US (occurrence: US)
  Receive Date: 20200127
  Receipt Date: 20200127
  Transmission Date: 20200409
  Serious: No
  Sender: FDA-Public Use
  Company Number: US-ABBVIE-19K-163-2992365-00

PATIENT
  Sex: Male

DRUGS (1)
  1. LUPRON DEPOT [Suspect]
     Active Substance: LEUPROLIDE ACETATE
     Indication: PRODUCT USED FOR UNKNOWN INDICATION
     Route: 030
     Dates: end: 201905

REACTIONS (7)
  - CSF pressure abnormal [Unknown]
  - Impaired work ability [Unknown]
  - Dizziness [Unknown]
  - Fatigue [Unknown]
  - Disorientation [Unknown]
  - Depression [Unknown]
  - Impaired quality of life [Unknown]

NARRATIVE: CASE EVENT DATE: 2019
